FAERS Safety Report 7393045-3 (Version None)
Quarter: 2011Q2

REPORT INFORMATION
  Report Type: 
  Country: None (occurrence: None)
  Receive Date: 20110404
  Receipt Date: 20110329
  Transmission Date: 20111010
  Serious: Yes (Hospitalization, Other)
  Sender: FDA-Public Use
  Company Number: US-ABBOTT-11P-163-0714928-00

PATIENT
  Age: 63 Year
  Sex: Male
  Weight: 76.8 kg

DRUGS (8)
  1. TRAMADOL [Concomitant]
     Indication: PRODUCT USED FOR UNKNOWN INDICATION
  2. ASPIRIN [Concomitant]
     Indication: PRODUCT USED FOR UNKNOWN INDICATION
  3. CALCITONIN SALMON [Concomitant]
     Indication: PRODUCT USED FOR UNKNOWN INDICATION
  4. LENALIDOMIDE [Suspect]
     Indication: MULTIPLE MYELOMA
     Dosage: 25MG CYCLIC
     Route: 048
     Dates: start: 20110209, end: 20110218
  5. VELCADE [Suspect]
     Indication: MULTIPLE MYELOMA
     Dosage: DAYS 1,3,8 AND 11
     Route: 042
     Dates: start: 20110209, end: 20110218
  6. DEXAMETHASONE [Suspect]
     Indication: MULTIPLE MYELOMA
     Dosage: 20 MG CYCLIC
     Route: 048
     Dates: start: 20110209, end: 20110217
  7. FLEXERIL [Concomitant]
     Indication: PRODUCT USED FOR UNKNOWN INDICATION
  8. VICODIN [Suspect]
     Indication: PRODUCT USED FOR UNKNOWN INDICATION

REACTIONS (8)
  - PYREXIA [None]
  - INJURY [None]
  - GASTRITIS VIRAL [None]
  - MULTIPLE MYELOMA [None]
  - ANKLE FRACTURE [None]
  - VOMITING [None]
  - EXPOSURE TO TOXIC AGENT [None]
  - DEEP VEIN THROMBOSIS [None]
